FAERS Safety Report 11057109 (Version 8)
Quarter: 2016Q3

REPORT INFORMATION
  Report Type: Report from Study
  Country: NL (occurrence: NL)
  Receive Date: 20150422
  Receipt Date: 20160929
  Transmission Date: 20161109
  Serious: Yes (Death, Life-Threatening, Hospitalization, Other)
  Sender: FDA-Public Use
  Company Number: NL-INCYTE CORPORATION-2015IN001635

PATIENT
  Age: 76 Year
  Sex: Female
  Weight: 62.3 kg

DRUGS (3)
  1. MIDAZOLAM [Concomitant]
     Active Substance: MIDAZOLAM\MIDAZOLAM HYDROCHLORIDE
     Indication: PRODUCT USED FOR UNKNOWN INDICATION
     Route: 065
  2. MIDAZOLAM [Concomitant]
     Active Substance: MIDAZOLAM\MIDAZOLAM HYDROCHLORIDE
     Route: 065
  3. JAKAFI [Suspect]
     Active Substance: RUXOLITINIB
     Indication: MYELOFIBROSIS
     Dosage: 20 MG, BID
     Route: 048
     Dates: start: 20130131

REACTIONS (31)
  - Candida infection [Recovered/Resolved]
  - Chest pain [Unknown]
  - Transfusion-related acute lung injury [Unknown]
  - Hypoxia [Unknown]
  - Haemorrhage [Unknown]
  - Myelofibrosis [Fatal]
  - Respiratory rate decreased [Unknown]
  - Blood pressure decreased [Unknown]
  - Leukocytosis [Fatal]
  - Abdominal distension [Unknown]
  - Blood pressure increased [Unknown]
  - Dyspnoea [Recovered/Resolved]
  - Thrombocytopenia [Unknown]
  - Pyrexia [Recovered/Resolved]
  - Urinary tract infection [Fatal]
  - Cough [Recovering/Resolving]
  - Haemoptysis [Unknown]
  - Bronchospasm [Unknown]
  - Pyrexia [Recovered/Resolved]
  - Hallucination [Recovered/Resolved]
  - Abdominal pain [Unknown]
  - Dyspnoea [Recovered/Resolved]
  - Cardiac asthma [Unknown]
  - Anaemia [Unknown]
  - Dyspnoea [Fatal]
  - Pyrexia [Fatal]
  - Dyspnoea [Recovered/Resolved]
  - Pulmonary haemorrhage [Unknown]
  - Hyperhidrosis [Unknown]
  - Pneumonia [Fatal]
  - Palpitations [Unknown]

NARRATIVE: CASE EVENT DATE: 201305
